FAERS Safety Report 4786140-6 (Version None)
Quarter: 2005Q4

REPORT INFORMATION
  Report Type: 
  Country: None (occurrence: None)
  Receive Date: 20051003
  Receipt Date: 20050316
  Transmission Date: 20060501
  Serious: Yes (Hospitalization, Other)
  Sender: FDA-Public Use
  Company Number: ES-BRISTOL-MYERS SQUIBB COMPANY-12899928

PATIENT
  Age: 67 Year
  Sex: Male

DRUGS (2)
  1. CETUXIMAB [Suspect]
     Indication: COLORECTAL CANCER METASTATIC
     Dosage: 6TH CYTLE. THERAPY START DATE 22-APR-04.
     Route: 042
     Dates: start: 20040812, end: 20040812
  2. IRINOTECAN HCL [Suspect]
     Indication: COLORECTAL CANCER METASTATIC
     Dosage: 6TH CYCLE. THERAPY START DATE 22-APR-04.
     Route: 042
     Dates: start: 20040805, end: 20040805

REACTIONS (4)
  - ABDOMINAL ABSCESS [None]
  - BACTERIAL CULTURE POSITIVE [None]
  - CATHETER RELATED INFECTION [None]
  - THERAPEUTIC RESPONSE UNEXPECTED [None]
